FAERS Safety Report 13037941 (Version 1)
Quarter: 2016Q4

REPORT INFORMATION
  Report Type: Spontaneous
  Country: FR (occurrence: FR)
  Receive Date: 20161218
  Receipt Date: 20161218
  Transmission Date: 20170207
  Serious: Yes (Hospitalization, Disabling, Other)
  Sender: FDA-Public Use
  Company Number: FR-BRISTOL-MYERS SQUIBB COMPANY-BMS-2016-106522

PATIENT
  Age: 53 Year
  Sex: Female

DRUGS (2)
  1. REYATAZ [Suspect]
     Active Substance: ATAZANAVIR SULFATE
     Indication: HIV INFECTION
     Dosage: 1 DF, QD
     Route: 048
     Dates: start: 2005, end: 20160614
  2. NORVIR [Concomitant]
     Active Substance: RITONAVIR
     Indication: PRODUCT USED FOR UNKNOWN INDICATION
     Route: 065

REACTIONS (4)
  - Nephrolithiasis [Recovered/Resolved with Sequelae]
  - Haematuria [Recovered/Resolved]
  - Proteinuria [Recovered/Resolved]
  - Nephrectomy [Recovered/Resolved with Sequelae]

NARRATIVE: CASE EVENT DATE: 201308
